FAERS Safety Report 8138153-4 (Version None)
Quarter: 2012Q1

REPORT INFORMATION
  Report Type: 
  Country: None (occurrence: None)
  Receive Date: 20120215
  Receipt Date: 20120203
  Transmission Date: 20120608
  Serious: Yes (Life-Threatening)
  Sender: FDA-Public Use
  Company Number: US-ABBOTT-12P-163-0901428-00

PATIENT
  Age: 61 Year
  Sex: Male

DRUGS (2)
  1. HUMIRA [Suspect]
     Indication: PSORIASIS
     Dates: start: 20110601, end: 20120201
  2. HUMIRA [Suspect]

REACTIONS (6)
  - BLOOD GLUCOSE INCREASED [None]
  - GASTRIC INFECTION [None]
  - POLLAKIURIA [None]
  - COUGH [None]
  - URINARY TRACT INFECTION [None]
  - DRY MOUTH [None]
